FAERS Safety Report 5397197-6 (Version None)
Quarter: 2007Q3

REPORT INFORMATION
  Report Type: 
  Country: None (occurrence: None)
  Receive Date: 20070725
  Receipt Date: 20070713
  Transmission Date: 20080115
  Serious: Yes (Life-Threatening)
  Sender: FDA-Public Use
  Company Number: FR-PFIZER INC-2007057892

PATIENT
  Age: 70 Year
  Sex: Male

DRUGS (11)
  1. DOXORUBICIN HYDROCHLORIDE [Suspect]
     Indication: LYMPHOMA
     Route: 042
     Dates: start: 20020607, end: 20031030
  2. ETOPOSIDE [Suspect]
     Indication: LYMPHOMA
     Dosage: DAILY DOSE:150MG/M2
     Route: 042
     Dates: start: 20020607, end: 20031030
  3. CYCLOPHOSPHAMIDE [Suspect]
     Indication: LYMPHOMA
     Dosage: DAILY DOSE:900MG
     Route: 042
     Dates: start: 20020607, end: 20031030
  4. FLUDARA [Suspect]
     Indication: LYMPHOMA
     Dosage: DAILY DOSE:60MG
     Route: 048
     Dates: start: 20020705, end: 20070128
  5. MABTHERA [Suspect]
     Indication: LYMPHOMA
     Dosage: DAILY DOSE:60MG
     Route: 042
     Dates: start: 20020705, end: 20070125
  6. PEGINTERFERON ALFA-2B [Suspect]
     Indication: LYMPHOMA
     Dosage: TEXT:35 ?G/DAY
     Route: 058
     Dates: start: 20020607, end: 20031030
  7. DIAMICRON [Concomitant]
  8. STAGID [Concomitant]
  9. TICLID [Concomitant]
  10. FONZYLANE [Concomitant]
  11. PREDNISONE [Concomitant]

REACTIONS (2)
  - MALIGNANT NEOPLASM PROGRESSION [None]
  - TRANSITIONAL CELL CARCINOMA [None]
